FAERS Safety Report 9637948 (Version 1)
Quarter: 2013Q4

REPORT INFORMATION
  Report Type: Spontaneous
  Country: GB (occurrence: GB)
  Receive Date: 20131022
  Receipt Date: 20131022
  Transmission Date: 20140711
  Serious: Yes (Other)
  Sender: FDA-Public Use
  Company Number: GB-ELI_LILLY_AND_COMPANY-GB201310003420

PATIENT
  Age: 52 Year
  Sex: Female

DRUGS (4)
  1. HUMALOG LISPRO [Suspect]
     Indication: DIABETES MELLITUS
     Dosage: 24 U, QD
     Route: 065
     Dates: start: 20130619
  2. HUMALOG LISPRO [Suspect]
     Dosage: 20 U, EACH EVENING
     Route: 065
     Dates: start: 20130619
  3. METFORMIN [Concomitant]
  4. LANTUS [Concomitant]

REACTIONS (2)
  - Extrasystoles [Not Recovered/Not Resolved]
  - Malaise [Not Recovered/Not Resolved]
